FAERS Safety Report 6601196-3 (Version None)
Quarter: 2010Q1

REPORT INFORMATION
  Report Type: 
  Country: None (occurrence: None)
  Receive Date: 20100224
  Receipt Date: 20100224
  Transmission Date: 20100710
  Serious: Yes (Life-Threatening, Hospitalization, Disabling)
  Sender: FDA-Public Use
  Company Number: None

PATIENT
  Age: 90 Year
  Sex: Male
  Weight: 63.5036 kg

DRUGS (2)
  1. SANCTURA XR [Suspect]
     Indication: URGE INCONTINENCE
     Dosage: 1 DAILY 60 MG DAILY 047
     Dates: start: 20090910, end: 20091010
  2. ARICEPT [Concomitant]

REACTIONS (2)
  - OVERDOSE [None]
  - PSYCHOTIC DISORDER [None]
